FAERS Safety Report 9008730 (Version 2)
Quarter: 2013Q1

REPORT INFORMATION
  Report Type: Spontaneous
  Country: DE (occurrence: DE)
  Receive Date: 20130111
  Receipt Date: 20130225
  Transmission Date: 20140127
  Serious: Yes (Death)
  Sender: FDA-Public Use
  Company Number: DE-ROCHE-1178804

PATIENT
  Age: 63 Year
  Sex: Female
  Weight: 56.3 kg

DRUGS (11)
  1. ZELBORAF [Suspect]
     Indication: METASTATIC MALIGNANT MELANOMA
     Route: 048
     Dates: start: 20121119, end: 20121218
  2. BUCLOSAMIDE [Concomitant]
     Indication: CHRONIC OBSTRUCTIVE PULMONARY DISEASE
     Dosage: INHALATION
     Route: 065
     Dates: start: 201104, end: 20121218
  3. FUROSEMIDE [Concomitant]
     Indication: HYPERTENSION
     Route: 048
     Dates: start: 201104, end: 20121120
  4. FORMOTOP [Concomitant]
     Indication: CHRONIC OBSTRUCTIVE PULMONARY DISEASE
     Dosage: INHALATON
     Route: 065
     Dates: start: 201104, end: 20121218
  5. LORAZEPAM [Concomitant]
     Indication: SLEEP DISORDER
     Route: 048
     Dates: start: 201104, end: 20121123
  6. LORAZEPAM [Concomitant]
     Indication: INSOMNIA
  7. MUCOSOLVAN [Concomitant]
     Indication: CHRONIC OBSTRUCTIVE PULMONARY DISEASE
     Route: 065
     Dates: start: 201104, end: 201212
  8. XIPAMIDE [Concomitant]
     Route: 065
     Dates: start: 201208, end: 20121122
  9. EFEROX [Concomitant]
     Indication: HYPOTHYROIDISM
     Route: 065
     Dates: start: 201104, end: 201212
  10. SPIRONOLACTON [Concomitant]
     Indication: CHRONIC OBSTRUCTIVE PULMONARY DISEASE
     Route: 048
     Dates: start: 20120725, end: 20121218
  11. SPIRONOLACTON [Concomitant]
     Indication: HYPERTENSION

REACTIONS (1)
  - Respiratory acidosis [Fatal]
